FAERS Safety Report 8036426-7 (Version None)
Quarter: 2012Q1

REPORT INFORMATION
  Report Type: 
  Country: None (occurrence: None)
  Receive Date: 20120111
  Receipt Date: 20120106
  Transmission Date: 20120608
  Serious: No
  Sender: FDA-Public Use
  Company Number: US-B.I. PHARMACEUTICALS,INC./RIDGEFIELD-2012-BP-00347BP

PATIENT
  Sex: Female

DRUGS (7)
  1. LIPITOR [Concomitant]
     Indication: BLOOD CHOLESTEROL INCREASED
     Dosage: 20 MG
     Route: 048
     Dates: start: 20080101
  2. VENTOLIN [Concomitant]
     Indication: CHRONIC OBSTRUCTIVE PULMONARY DISEASE
     Dates: start: 20090101
  3. LEVOXYL [Concomitant]
     Indication: HYPOTHYROIDISM
     Dosage: 0.5 MG
     Route: 048
     Dates: start: 20100101
  4. FUROSEMIDE [Concomitant]
     Indication: OEDEMA PERIPHERAL
     Dosage: 40 MG
     Route: 048
     Dates: start: 20050101
  5. XALATAN [Concomitant]
     Indication: INTRAOCULAR PRESSURE INCREASED
     Dates: start: 20050101
  6. SPIRIVA [Suspect]
     Indication: CHRONIC OBSTRUCTIVE PULMONARY DISEASE
     Dosage: 18 MCG
     Route: 055
     Dates: start: 20100101
  7. CALCIUM ACETATE [Concomitant]
     Indication: SUPPLEMENTATION THERAPY

REACTIONS (3)
  - INTENTIONAL DRUG MISUSE [None]
  - DRY MOUTH [None]
  - GLOSSODYNIA [None]
